FAERS Safety Report 23635005 (Version 1)
Quarter: 2024Q1

REPORT INFORMATION
  Report Type: Spontaneous
  Country: ES (occurrence: ES)
  Receive Date: 20240315
  Receipt Date: 20240315
  Transmission Date: 20240409
  Serious: Yes (Hospitalization)
  Sender: FDA-Public Use
  Company Number: ES-SANDOZ-SDZ2024ES027138

PATIENT
  Age: 67 Year
  Sex: Female

DRUGS (3)
  1. OMEPRAZOLE [Concomitant]
     Active Substance: OMEPRAZOLE
     Indication: Helicobacter gastritis
     Dosage: 20 MG
     Route: 065
  2. AMOXICILLIN [Interacting]
     Active Substance: AMOXICILLIN
     Indication: Helicobacter gastritis
     Dosage: 1 G, Q12H
     Route: 065
  3. CLARITHROMYCIN [Interacting]
     Active Substance: CLARITHROMYCIN
     Indication: Helicobacter gastritis
     Dosage: 500 MG
     Route: 065

REACTIONS (2)
  - Mania [Recovering/Resolving]
  - Drug interaction [Unknown]
